FAERS Safety Report 5942064-X (Version None)
Quarter: 2008Q4

REPORT INFORMATION
  Report Type: 
  Country: None (occurrence: None)
  Receive Date: 20081105
  Receipt Date: 20081103
  Transmission Date: 20090506
  Serious: Yes (Other)
  Sender: FDA-Public Use
  Company Number: A0754626A

PATIENT
  Age: 40 Year
  Sex: Male

DRUGS (2)
  1. PAXIL [Suspect]
     Dosage: 60MG PER DAY
     Route: 048
     Dates: start: 20000601, end: 20080501
  2. NO CONCURRENT MEDICATION [Concomitant]

REACTIONS (6)
  - DIARRHOEA [None]
  - DIZZINESS [None]
  - EJACULATION DELAYED [None]
  - GASTROENTERITIS VIRAL [None]
  - HEADACHE [None]
  - WITHDRAWAL SYNDROME [None]
